FAERS Safety Report 12741726 (Version 2)
Quarter: 2016Q3

REPORT INFORMATION
  Report Type: Report from Study
  Country: US (occurrence: US)
  Receive Date: 20160914
  Receipt Date: 20160930
  Transmission Date: 20161109
  Serious: Yes (Hospitalization)
  Sender: FDA-Public Use
  Company Number: US-BIOVITRUM-2016US0721

PATIENT
  Sex: Male

DRUGS (1)
  1. KINERET [Suspect]
     Active Substance: ANAKINRA
     Indication: FAMILIAL AMYLOIDOSIS
     Dosage: 75 MG
     Route: 058
     Dates: start: 20160828

REACTIONS (6)
  - Vomiting [Unknown]
  - Hypertension [Unknown]
  - Epistaxis [Unknown]
  - Pyrexia [Unknown]
  - Injection site erythema [Not Recovered/Not Resolved]
  - Injection site pruritus [Not Recovered/Not Resolved]
